FAERS Safety Report 4448662-7 (Version None)
Quarter: 2004Q3

REPORT INFORMATION
  Report Type: 
  Country: None (occurrence: None)
  Receive Date: 20040909
  Receipt Date: 20040826
  Transmission Date: 20050211
  Serious: Yes (Death)
  Sender: FDA-Public Use
  Company Number: B01200401623

PATIENT
  Age: 63 Year
  Sex: Male

DRUGS (5)
  1. (OXALIPLATIN) SOLUTION 195 MG [Suspect]
     Indication: COLORECTAL CANCER METASTATIC
     Dosage: 85 MG/M2 Q2W (CUMULATIVE DOSE : 1170 MG)
     Route: 042
     Dates: start: 20040628, end: 20040628
  2. FLUOROURACIL [Suspect]
     Dosage: 400 MG/M2 BOLUS THEN 600 MG/M2 22 HOUR CONTINUOUS INFUSION ON D1 AND D2 Q2W (CUMULATIVE DOSE: 27480
     Route: 042
     Dates: start: 20040628, end: 20040629
  3. LEUCOVORIN 458 MG [Suspect]
     Dosage: 200 MG/M2 Q2W (CUMULATIVE DOSE : 5496 MG)
     Route: 042
     Dates: start: 20040628, end: 20040629
  4. ATENOLOL [Concomitant]
  5. BENDROFLUAZIDE [Concomitant]

REACTIONS (4)
  - BLOOD CALCIUM DECREASED [None]
  - BLOOD MAGNESIUM DECREASED [None]
  - HEPATIC CANCER METASTATIC [None]
  - SUDDEN DEATH [None]
